FAERS Safety Report 9563238 (Version 2)
Quarter: 2013Q3

REPORT INFORMATION
  Report Type: Spontaneous
  Country: CH (occurrence: CH)
  Receive Date: 20130927
  Receipt Date: 20130927
  Transmission Date: 20140515
  Serious: Yes (Life-Threatening, Hospitalization, Other)
  Sender: FDA-Public Use
  Company Number: CH-ABBVIE-11P-151-0714023-00

PATIENT
  Age: 62 Year
  Sex: Male
  Weight: 100 kg

DRUGS (11)
  1. HUMIRA 40 MG/ 0.8 ML PRE-FILLED SYRINGE [Suspect]
     Indication: RHEUMATOID ARTHRITIS
     Route: 041
     Dates: start: 20110121, end: 20110121
  2. ENBREL [Suspect]
     Indication: RHEUMATOID ARTHRITIS
     Route: 058
     Dates: start: 20101122, end: 20110121
  3. ARAVA [Suspect]
     Indication: RHEUMATOID ARTHRITIS
     Route: 048
     Dates: start: 20100922, end: 20101122
  4. NOVALGIN [Suspect]
     Indication: RHEUMATOID ARTHRITIS
     Dates: start: 20110114, end: 20110117
  5. METHOTREXATE [Suspect]
     Indication: RHEUMATOID ARTHRITIS
     Route: 048
     Dates: start: 201004, end: 201004
  6. METHOTREXATE [Suspect]
     Route: 048
     Dates: start: 20100428, end: 20100715
  7. METHOTREXATE [Suspect]
     Dates: start: 20100716, end: 20100922
  8. PREDNISONE [Suspect]
     Indication: RHEUMATOID ARTHRITIS
     Dates: start: 20101015, end: 20101128
  9. PREDNISONE [Suspect]
     Route: 048
     Dates: start: 20101129, end: 20101230
  10. FUROSEMIDE [Concomitant]
     Indication: CARDIAC FAILURE CONGESTIVE
     Route: 048
     Dates: end: 20110131
  11. SPIRONOLACTONE [Concomitant]
     Indication: CARDIAC FAILURE CONGESTIVE
     Route: 048
     Dates: end: 20110131

REACTIONS (12)
  - Cardiac arrest [Recovered/Resolved]
  - Ventricular fibrillation [Recovered/Resolved]
  - Ventricular tachycardia [Recovered/Resolved]
  - Ventricular tachycardia [Recovered/Resolved]
  - Cardiac failure [Not Recovered/Not Resolved]
  - Amyloidosis [Not Recovered/Not Resolved]
  - Syncope [Recovered/Resolved]
  - Bundle branch block left [Unknown]
  - Altered state of consciousness [Recovered/Resolved]
  - Pain [Unknown]
  - Hyperthermia [Unknown]
  - Weight increased [Unknown]
